FAERS Safety Report 13099677 (Version 1)
Quarter: 2017Q1

REPORT INFORMATION
  Report Type: Report from Study
  Country: None (occurrence: NL)
  Receive Date: 20170110
  Receipt Date: 20170110
  Transmission Date: 20170509
  Serious: Yes (Hospitalization, Other)
  Sender: FDA-Public Use
  Company Number: NL-ABBVIE-16P-114-1775821-00

PATIENT
  Age: 65 Year
  Sex: Male
  Weight: 92 kg

DRUGS (2)
  1. DUODOPA [Suspect]
     Active Substance: CARBIDOPA\LEVODOPA
     Indication: PARKINSON^S DISEASE
     Dosage: MORNING DOSE:  14.3  CONTINUOUS DOSE:  3.8     EXTRA DOSE:  2.5
     Route: 050
     Dates: start: 20151019, end: 201604
  2. DUODOPA [Suspect]
     Active Substance: CARBIDOPA\LEVODOPA
     Route: 050
     Dates: start: 20160907

REACTIONS (6)
  - Abdominal pain [Recovered/Resolved]
  - Procedural complication [Unknown]
  - Unwanted awareness during anaesthesia [Unknown]
  - Procedural complication [Unknown]
  - Intestinal perforation [Recovered/Resolved]
  - Device dislocation [Unknown]

NARRATIVE: CASE EVENT DATE: 2016
